FAERS Safety Report 9838150 (Version 1)
Quarter: 2013Q4

REPORT INFORMATION
  Report Type: Spontaneous
  Country: US (occurrence: None)
  Receive Date: 20131205
  Receipt Date: 20131205
  Transmission Date: 20140711
  Serious: Yes (Other)
  Sender: FDA-Public Use
  Company Number: 163-POMAL-13092631

PATIENT
  Age: 62 Year
  Sex: Female

DRUGS (7)
  1. POMALYST (POMALIDOMIDE) (4 MILLIGRAM CAPSULES) [Suspect]
     Indication: PLASMA CELL MYELOMA
     Dosage: 4 MG, 1 IN 1 D
     Dates: start: 201304
  2. DEXAMETHASONE (DEXAMETHASONE) [Concomitant]
  3. ZOLPIDEM TARTRATE (ZOLPIDEM TARTRATE) [Concomitant]
  4. BUPRENORPHINE [Concomitant]
  5. ACYCLOVIR (ACICLOVIR) [Concomitant]
  6. OXYCODONE HCL (OXYCODONE HYDROCHLORIDE) [Concomitant]
  7. ASPIRIN EC (ACETYLSALICYLIC ACID) [Concomitant]

REACTIONS (1)
  - Thrombosis [None]
